FAERS Safety Report 5226493-8 (Version None)
Quarter: 2007Q1

REPORT INFORMATION
  Report Type: 
  Country: None (occurrence: None)
  Receive Date: 20070201
  Receipt Date: 20070122
  Transmission Date: 20070707
  Serious: Yes (Hospitalization)
  Sender: FDA-Public Use
  Company Number: GB-PFIZER INC-2006129962

PATIENT
  Sex: Male
  Weight: 55.3 kg

DRUGS (10)
  1. SU-011,248 [Suspect]
     Indication: METASTATIC RENAL CELL CARCINOMA
     Route: 048
     Dates: start: 20060831, end: 20060927
  2. SU-011,248 [Suspect]
     Route: 048
     Dates: start: 20061012, end: 20061019
  3. LEVOTHYROXINE SODIUM [Concomitant]
     Indication: HYPOTHYROIDISM
     Route: 048
  4. MESALAMINE [Concomitant]
     Indication: COLITIS ULCERATIVE
     Route: 048
  5. SIMVASTATIN [Concomitant]
     Indication: HYPERCHOLESTEROLAEMIA
     Route: 048
  6. RAMIPRIL [Concomitant]
     Indication: HYPERTENSION
     Route: 048
  7. BISOPROLOL FUMARATE [Concomitant]
     Indication: HYPERTENSION
     Route: 048
  8. TAMSULOSIN HCL [Concomitant]
     Indication: BENIGN PROSTATIC HYPERPLASIA
     Route: 048
  9. SENNA [Concomitant]
     Indication: CONSTIPATION
     Route: 048
  10. DOMPERIDONE [Concomitant]
     Indication: NAUSEA
     Route: 048

REACTIONS (5)
  - ACCIDENT [None]
  - ANGINA PECTORIS [None]
  - MYOCARDIAL ISCHAEMIA [None]
  - PALMAR-PLANTAR ERYTHRODYSAESTHESIA SYNDROME [None]
  - STOMATITIS [None]
